FAERS Safety Report 5347836-0 (Version None)
Quarter: 2007Q2

REPORT INFORMATION
  Report Type: 
  Country: None (occurrence: None)
  Receive Date: 20070606
  Receipt Date: 20070531
  Transmission Date: 20071010
  Serious: Yes (Hospitalization)
  Sender: FDA-Public Use
  Company Number: GB-ROCHE-500816

PATIENT
  Age: 57 Year
  Sex: Female
  Weight: 79 kg

DRUGS (2)
  1. XENICAL [Suspect]
     Indication: OBESITY
     Route: 048
     Dates: start: 20061116
  2. LANSOPRAZOLE [Concomitant]
     Indication: ILL-DEFINED DISORDER
     Route: 048

REACTIONS (1)
  - ULCER [None]
